FAERS Safety Report 9836268 (Version 4)
Quarter: 2014Q4

REPORT INFORMATION
  Report Type: Report from Study
  Country: GB (occurrence: GB)
  Receive Date: 20140123
  Receipt Date: 20141121
  Transmission Date: 20150529
  Serious: Yes (Hospitalization)
  Sender: FDA-Public Use
  Company Number: GB-ROCHE-1337926

PATIENT
  Age: 85 Year
  Sex: Female

DRUGS (7)
  1. METFORMIN [Concomitant]
     Active Substance: METFORMIN HYDROCHLORIDE
  2. INSULIN [Concomitant]
     Active Substance: INSULIN NOS
  3. RANIBIZUMAB [Suspect]
     Active Substance: RANIBIZUMAB
     Route: 065
     Dates: start: 20140114, end: 20140114
  4. GLIPIZIDE. [Concomitant]
     Active Substance: GLIPIZIDE
  5. RANIBIZUMAB [Suspect]
     Active Substance: RANIBIZUMAB
     Indication: CHOROIDAL NEOVASCULARISATION
     Dosage: 0.5MG (0.05ML)
     Route: 050
     Dates: start: 20131204, end: 20131204
  6. LISINOPRIL. [Concomitant]
     Active Substance: LISINOPRIL
  7. RANIBIZUMAB [Suspect]
     Active Substance: RANIBIZUMAB
     Indication: AGE-RELATED MACULAR DEGENERATION
     Dosage: 0.5 MG/0.05 ML
     Route: 050
     Dates: start: 20081231

REACTIONS (2)
  - Cerebrovascular accident [Recovering/Resolving]
  - Fall [Unknown]

NARRATIVE: CASE EVENT DATE: 20131215
